FAERS Safety Report 24306625 (Version 1)
Quarter: 2024Q3

REPORT INFORMATION
  Report Type: Spontaneous
  Country: US (occurrence: US)
  Receive Date: 20240911
  Receipt Date: 20240911
  Transmission Date: 20241016
  Serious: No
  Sender: GLAXOSMITHKLINE
  Company Number: US-GSK-US2024AMR110609

PATIENT
  Sex: Female

DRUGS (1)
  1. IMITREX [Suspect]
     Active Substance: SUMATRIPTAN SUCCINATE
     Indication: Product used for unknown indication
     Dosage: UNK

REACTIONS (2)
  - Drug hypersensitivity [Unknown]
  - Vomiting [Unknown]
